FAERS Safety Report 9115609 (Version 1)
Quarter: 2013Q1

REPORT INFORMATION
  Report Type: Spontaneous
  Country: US (occurrence: None)
  Receive Date: 20130221
  Receipt Date: 20130221
  Transmission Date: 20140127
  Serious: Yes (Life-Threatening)
  Sender: FDA-Public Use
  Company Number: None

PATIENT
  Sex: Male

DRUGS (1)
  1. SUTENT [Suspect]
     Dosage: SUTENT 50MG 1 QD PO
     Route: 048
     Dates: start: 20130126, end: 20130208

REACTIONS (6)
  - Chills [None]
  - Pruritus generalised [None]
  - Blood urine present [None]
  - Cough [None]
  - Chest pain [None]
  - Fatigue [None]
